FAERS Safety Report 23512549 (Version 1)
Quarter: 2024Q1

REPORT INFORMATION
  Report Type: Spontaneous
  Country: US (occurrence: None)
  Receive Date: 20240209
  Receipt Date: 20240209
  Transmission Date: 20240409
  Serious: Yes (Life-Threatening, Hospitalization, Disabling)
  Sender: FDA-Public Use
  Company Number: None

PATIENT
  Age: 64 Year
  Sex: Male

DRUGS (2)
  1. PLAVIX [Suspect]
     Active Substance: CLOPIDOGREL BISULFATE
     Indication: Cerebrovascular accident
     Dosage: FREQUENCY : DAILY;?
     Route: 048
     Dates: start: 20220801, end: 20230601
  2. ASPIRIN [Concomitant]
     Active Substance: ASPIRIN
     Dates: start: 20220801, end: 20230601

REACTIONS (6)
  - Acquired haemophilia [None]
  - Haematoma [None]
  - Haemorrhage [None]
  - Post procedural haemorrhage [None]
  - Submandibular abscess [None]
  - Respiratory disorder [None]

NARRATIVE: CASE EVENT DATE: 20230603
